FAERS Safety Report 10685438 (Version 2)
Quarter: 2015Q1

REPORT INFORMATION
  Report Type: Spontaneous
  Country: US (occurrence: US)
  Receive Date: 20141231
  Receipt Date: 20150121
  Transmission Date: 20150720
  Serious: Yes (Hospitalization, Other)
  Sender: FDA-Public Use
  Company Number: US-BAXTER-2014BAX076566

PATIENT
  Age: 53 Year
  Sex: Female

DRUGS (2)
  1. DIANEAL LOW CALCIUM PERITONEAL DIALYSIS SOLUTION WITH DEXTROSE [Suspect]
     Active Substance: CALCIUM CHLORIDE\DEXTROSE\MAGNESIUM CHLORIDE\SODIUM CHLORIDE\SODIUM LACTATE
     Indication: CHRONIC KIDNEY DISEASE
     Route: 033
     Dates: start: 20140210
  2. DIANEAL LOW CALCIUM PERITONEAL DIALYSIS SOLUTION WITH DEXTROSE [Suspect]
     Active Substance: CALCIUM CHLORIDE\DEXTROSE\MAGNESIUM CHLORIDE\SODIUM CHLORIDE\SODIUM LACTATE
     Indication: CHRONIC KIDNEY DISEASE
     Route: 033
     Dates: start: 20140210

REACTIONS (7)
  - Procedural complication [Recovering/Resolving]
  - Blood calcium abnormal [Recovering/Resolving]
  - Muscle spasms [Recovering/Resolving]
  - Blood parathyroid hormone increased [Recovering/Resolving]
  - Blood calcium increased [Recovering/Resolving]
  - Blood calcium decreased [Recovering/Resolving]
  - Blood phosphorus increased [Recovering/Resolving]

NARRATIVE: CASE EVENT DATE: 20141218
